FAERS Safety Report 8187005 (Version 4)
Quarter: 2014Q4

REPORT INFORMATION
  Report Type: Spontaneous
  Country: US (occurrence: US)
  Receive Date: 20111018
  Receipt Date: 20141118
  Transmission Date: 20150529
  Serious: No
  Sender: FDA-Public Use
  Company Number: US-ASTRAZENECA-2011SE47096

PATIENT
  Age: 78 Year
  Sex: Male

DRUGS (10)
  1. SYMBICORT [Suspect]
     Active Substance: BUDESONIDE\FORMOTEROL FUMARATE DIHYDRATE
     Dosage: 160/4.5MCG DAILY
     Route: 055
  2. OMEGA 3 FISH OIL [Concomitant]
     Active Substance: FISH OIL\OMEGA-3 FATTY ACIDS
  3. ECOTRIN [Concomitant]
     Active Substance: ASPIRIN
  4. SIMVASTATIN. [Concomitant]
     Active Substance: SIMVASTATIN
  5. VENTOLIN RESCUE INHALER [Concomitant]
  6. LOSARTAN [Concomitant]
     Active Substance: LOSARTAN
  7. SYMBICORT [Suspect]
     Active Substance: BUDESONIDE\FORMOTEROL FUMARATE DIHYDRATE
     Dosage: 160/4.5MCG TWO PUFFS TWO TIMES A DAY
     Route: 055
  8. ALFUZOSIN [Concomitant]
     Active Substance: ALFUZOSIN
  9. COMBIVENT [Concomitant]
     Active Substance: ALBUTEROL SULFATE\IPRATROPIUM BROMIDE
  10. PRESERVISION EYE VITAMINS [Concomitant]

REACTIONS (3)
  - Drug dose omission [Unknown]
  - Frustration [Unknown]
  - Dyspnoea [Unknown]
